FAERS Safety Report 4477576-1 (Version None)
Quarter: 2004Q4

REPORT INFORMATION
  Report Type: 
  Country: None (occurrence: None)
  Receive Date: 20041012
  Receipt Date: 20041001
  Transmission Date: 20050328
  Serious: Yes (Life-Threatening, Hospitalization)
  Sender: FDA-Public Use
  Company Number: STA-AE-04-MTX-464

PATIENT
  Age: 62 Year
  Sex: Female

DRUGS (6)
  1. METHOTREXATE [Suspect]
     Dates: start: 20020211, end: 20030611
  2. ENBREL [Suspect]
     Indication: RHEUMATOID ARTHRITIS
     Dosage: 25 MG 2X PR 1 WK, SC
     Route: 058
     Dates: start: 20021220, end: 20030611
  3. MEDROL [Suspect]
     Dosage: 6 MG 1X PER 1 DAY
  4. PLAQUENIL (HYDROCHLORIDE PHOSPHATE) [Concomitant]
  5. LEVOTHRYOXINE (LEVOTHYROXINE) [Concomitant]
  6. FOLIC ACID [Concomitant]

REACTIONS (4)
  - ARTHROPATHY [None]
  - DEEP VEIN THROMBOSIS [None]
  - MYOCARDIAL INFARCTION [None]
  - SEPSIS [None]
